FAERS Safety Report 8116311-2 (Version None)
Quarter: 2012Q1

REPORT INFORMATION
  Report Type: 
  Country: None (occurrence: None)
  Receive Date: 20120206
  Receipt Date: 20120202
  Transmission Date: 20120608
  Serious: Yes (Hospitalization)
  Sender: FDA-Public Use
  Company Number: US-GLAXOSMITHKLINE-A0892627A

PATIENT
  Age: 65 Year
  Sex: Male
  Weight: 67.7 kg

DRUGS (10)
  1. DIABETA [Concomitant]
  2. LEXAPRO [Concomitant]
  3. ZESTRIL [Concomitant]
  4. NORVASC [Concomitant]
  5. AVANDIA [Suspect]
     Indication: DIABETES MELLITUS
     Dosage: 4MG PER DAY
     Route: 048
  6. BUSPAR [Concomitant]
  7. LOPRESSOR [Concomitant]
  8. COMBIVENT [Concomitant]
  9. GLUCOPHAGE [Concomitant]
  10. DILANTIN [Concomitant]

REACTIONS (12)
  - MYOCARDIAL INFARCTION [None]
  - CORONARY ARTERY BYPASS [None]
  - QUALITY OF LIFE DECREASED [None]
  - CEREBROVASCULAR ACCIDENT [None]
  - CARDIAC FAILURE CONGESTIVE [None]
  - ARTERIOSCLEROSIS [None]
  - MITRAL VALVE INCOMPETENCE [None]
  - ANHEDONIA [None]
  - TRICUSPID VALVE INCOMPETENCE [None]
  - DEVICE MALFUNCTION [None]
  - LACUNAR INFARCTION [None]
  - ANXIETY [None]
